FAERS Safety Report 6270749-7 (Version None)
Quarter: 2009Q3

REPORT INFORMATION
  Report Type: 
  Country: None (occurrence: None)
  Receive Date: 20090716
  Receipt Date: 20090710
  Transmission Date: 20100115
  Serious: Yes (Hospitalization)
  Sender: FDA-Public Use
  Company Number: JP-B.I. PHARMACEUTICALS,INC./RIDGEFIELD-2009-BP-03327NB

PATIENT
  Sex: Female
  Weight: 75 kg

DRUGS (4)
  1. PERSANTINE [Suspect]
     Indication: GLOMERULONEPHRITIS CHRONIC
     Dosage: 150 MG
     Route: 048
     Dates: start: 20090126, end: 20090303
  2. RISPERDAL [Suspect]
     Indication: HALLUCINATION
     Dosage: 6 MG
     Route: 048
     Dates: start: 20090124, end: 20090218
  3. LEXOTAN [Suspect]
     Indication: ANXIETY
     Dosage: 6 MG
     Route: 048
     Dates: start: 20090129, end: 20090303
  4. FLUTOPRAZEPAM [Suspect]
     Indication: INSOMNIA
     Dosage: 2 MG
     Route: 048
     Dates: start: 20090124, end: 20090228

REACTIONS (5)
  - ANXIETY [None]
  - GRANULOCYTE COUNT DECREASED [None]
  - PLATELET COUNT DECREASED [None]
  - RESTLESSNESS [None]
  - WHITE BLOOD CELL COUNT DECREASED [None]
